FAERS Safety Report 7090176-2 (Version None)
Quarter: 2010Q4

REPORT INFORMATION
  Report Type: 
  Country: None (occurrence: None)
  Receive Date: 20101104
  Receipt Date: 20101104
  Transmission Date: 20110411
  Serious: Yes (Hospitalization)
  Sender: FDA-Public Use
  Company Number: None

PATIENT
  Age: 37 Year
  Sex: Female

DRUGS (4)
  1. TUBERSOL [Suspect]
     Indication: IMMUNISATION
     Dosage: SUBDERMAL / LEFT FOREARM
     Route: 059
     Dates: start: 20100331
  2. HEP B [Suspect]
     Indication: IMMUNISATION
     Dosage: IM/RD
     Dates: start: 20100317
  3. PPD (TB) [Suspect]
     Indication: IMMUNISATION
     Dosage: SD/ LFA
     Route: 059
     Dates: start: 20100317
  4. TDAP [Suspect]
     Indication: IMMUNISATION
     Dosage: IM / LD
     Route: 030
     Dates: start: 20100317

REACTIONS (3)
  - MALAISE [None]
  - PRURITUS [None]
  - URTICARIA [None]
